FAERS Safety Report 14094416 (Version 1)
Quarter: 2017Q4

REPORT INFORMATION
  Report Type: Spontaneous
  Country: US (occurrence: US)
  Receive Date: 20171016
  Receipt Date: 20171016
  Transmission Date: 20180321
  Serious: Yes (Other)
  Sender: FDA-Public Use
  Company Number: US-PFIZER INC-2017441075

PATIENT
  Age: 69 Year
  Sex: Female
  Weight: 104 kg

DRUGS (1)
  1. ANBESOL MAXIMUM STRENGTH [Suspect]
     Active Substance: BENZOCAINE
     Indication: TOOTHACHE
     Dosage: WET THE TIP OF QTIP 4 TIMES A DAY
     Dates: start: 20171005, end: 20171006

REACTIONS (2)
  - Hypoaesthesia oral [Not Recovered/Not Resolved]
  - Hypoaesthesia [Not Recovered/Not Resolved]

NARRATIVE: CASE EVENT DATE: 20171006
